FAERS Safety Report 9368662 (Version 1)
Quarter: 2013Q2

REPORT INFORMATION
  Report Type: Spontaneous
  Country: US (occurrence: US)
  Receive Date: 20130626
  Receipt Date: 20130626
  Transmission Date: 20140414
  Serious: No
  Sender: FDA-Public Use
  Company Number: US-ASTELLAS-2013US000986

PATIENT
  Sex: Female

DRUGS (1)
  1. VESICARE [Suspect]
     Indication: PRODUCT USED FOR UNKNOWN INDICATION
     Dosage: 5 MG, QHS
     Route: 048
     Dates: start: 201301

REACTIONS (3)
  - Insomnia [Unknown]
  - Headache [Unknown]
  - Vision blurred [Recovered/Resolved]
